FAERS Safety Report 8823316 (Version 2)
Quarter: 2012Q4

REPORT INFORMATION
  Report Type: 
  Country: US (occurrence: US)
  Receive Date: 20121003
  Receipt Date: 20121203
  Transmission Date: 20130627
  Serious: No
  Sender: FDA-Public Use
  Company Number: US-009507513-1210USA001501

PATIENT
  Age: 63 Year
  Sex: Female
  Weight: 130.4 kg

DRUGS (12)
  1. PEGINTRON [Suspect]
     Indication: CHRONIC HEPATITIS C
     Dosage: 150 Microgram, qw
     Route: 058
     Dates: start: 20120907, end: 20121102
  2. RIBAPAK [Suspect]
     Dosage: 600 mg, bid
     Route: 048
     Dates: start: 20120907, end: 20121102
  3. TELAPREVIR [Suspect]
     Dosage: 750 mg, tid
     Route: 048
     Dates: start: 20120907, end: 20121102
  4. PRILOSEC [Concomitant]
     Dosage: 20 mg, UNK
     Route: 048
     Dates: start: 20120904
  5. AMLODIPINE BESYLATE [Concomitant]
     Dosage: 5 mg, UNK
     Route: 048
     Dates: start: 20120904
  6. POTASSIUM CHLORIDE - USP [Concomitant]
     Dosage: 10 mEq, UNK
     Route: 048
     Dates: start: 20120904
  7. BYSTOLIC [Concomitant]
     Dosage: 5 mg, UNK
     Route: 048
     Dates: start: 20120904
  8. MICARDIS [Concomitant]
     Dosage: 40 mg, UNK
     Route: 048
     Dates: start: 20120904
  9. NITROGLYCERIN [Concomitant]
     Dosage: 0.4 mg, prn
     Route: 060
     Dates: start: 20120904
  10. CELEBREX [Concomitant]
     Dosage: 100 mg, UNK
     Route: 048
     Dates: start: 20120904
  11. LASIX (FUROSEMIDE SODIUM) [Concomitant]
     Dosage: 40 mg, UNK
     Route: 048
     Dates: start: 20120904
  12. METOPROLOL TARTRATE [Concomitant]
     Dosage: 100 mg, UNK
     Route: 048
     Dates: start: 20120904

REACTIONS (6)
  - Product quality issue [Unknown]
  - No therapeutic response [Unknown]
  - Fatigue [Recovering/Resolving]
  - Pruritus [Recovering/Resolving]
  - Rash [Unknown]
  - Drug dose omission [Unknown]
